FAERS Safety Report 25865150 (Version 5)
Quarter: 2025Q4

REPORT INFORMATION
  Report Type: Report from Study
  Country: CA (occurrence: CA)
  Receive Date: 20250930
  Receipt Date: 20251224
  Transmission Date: 20260118
  Serious: Yes (Hospitalization, Other)
  Sender: SANOFI AVENTIS
  Company Number: CA-SA-2025SA289843

PATIENT
  Age: 66 Year
  Sex: Female

DRUGS (10)
  1. DUPILUMAB [Suspect]
     Active Substance: DUPILUMAB
     Indication: Asthma
     Dosage: 600 MG, 1X
     Route: 058
     Dates: start: 20231025, end: 20231025
  2. DUPILUMAB [Suspect]
     Active Substance: DUPILUMAB
     Dosage: 300 MG, QOW
     Route: 058
     Dates: start: 202311
  3. XOLAIR [Concomitant]
     Active Substance: OMALIZUMAB
     Dosage: UNK
     Dates: start: 2016
  4. XOLAIR [Concomitant]
     Active Substance: OMALIZUMAB
     Dates: start: 2016
  5. DYMISTA [Concomitant]
     Active Substance: AZELASTINE HYDROCHLORIDE\FLUTICASONE PROPIONATE
     Dosage: UNK
     Dates: start: 2019
  6. DYMISTA [Concomitant]
     Active Substance: AZELASTINE HYDROCHLORIDE\FLUTICASONE PROPIONATE
     Dates: start: 2019
  7. SINGULAIR [Concomitant]
     Active Substance: MONTELUKAST SODIUM
     Dosage: UNK
     Dates: start: 2016
  8. SINGULAIR [Concomitant]
     Active Substance: MONTELUKAST SODIUM
     Dosage: 10 MG  DOSE EVERY
     Dates: start: 2016
  9. SYMBICORT [Concomitant]
     Active Substance: BUDESONIDE\FORMOTEROL FUMARATE DIHYDRATE
     Dates: start: 2016
  10. SYMBICORT [Concomitant]
     Active Substance: BUDESONIDE\FORMOTEROL FUMARATE DIHYDRATE
     Dosage: [ 200/6 MCG]
     Dates: start: 2015

REACTIONS (4)
  - Intestinal perforation [Unknown]
  - Pneumonia [Unknown]
  - Wheezing [Unknown]
  - Asthma [Unknown]

NARRATIVE: CASE EVENT DATE: 20240101
